FAERS Safety Report 4288565-4 (Version None)
Quarter: 2004Q1

REPORT INFORMATION
  Report Type: 
  Country: None (occurrence: None)
  Receive Date: 20040204
  Receipt Date: 20040123
  Transmission Date: 20041129
  Serious: Yes (Other)
  Sender: FDA-Public Use
  Company Number: 200311501JP

PATIENT
  Age: 71 Year
  Sex: Female
  Weight: 36 kg

DRUGS (14)
  1. ARAVA [Suspect]
     Indication: RHEUMATOID ARTHRITIS
     Dosage: 100 MG/DAY PO
     Route: 048
     Dates: start: 20030920, end: 20030922
  2. ARAVA [Suspect]
     Indication: RHEUMATOID ARTHRITIS
     Dosage: 20 MG/DAY PO
     Route: 048
     Dates: start: 20030923, end: 20031212
  3. RIMATIL [Concomitant]
  4. PREDONINE [Concomitant]
  5. LOXONIN [Concomitant]
  6. MUCOSTA [Concomitant]
  7. BONALON [Concomitant]
  8. ENALAPRIL MALEATE [Concomitant]
  9. ENALAPRIL MALEATE [Concomitant]
  10. ADALAT [Concomitant]
  11. GASTER [Concomitant]
  12. ER [Concomitant]
  13. LFIDINE EN [Concomitant]
  14. METALCAPTASE [Concomitant]

REACTIONS (2)
  - HYPERTENSION [None]
  - INTERSTITIAL LUNG DISEASE [None]
